FAERS Safety Report 14123387 (Version 1)
Quarter: 2017Q4

REPORT INFORMATION
  Report Type: Report from Study
  Country: None (occurrence: US)
  Receive Date: 20171025
  Receipt Date: 20171025
  Transmission Date: 20180321
  Serious: Yes (Hospitalization, Other)
  Sender: FDA-Public Use
  Company Number: US-ABBVIE-17K-163-2120327-00

PATIENT
  Age: 50 Year
  Sex: Female
  Weight: 72.19 kg

DRUGS (1)
  1. HUMIRA [Suspect]
     Active Substance: ADALIMUMAB
     Indication: RHEUMATOID ARTHRITIS
     Route: 058
     Dates: start: 201708, end: 201709

REACTIONS (5)
  - Ureteric compression [Recovered/Resolved]
  - Abdominal mass [Recovered/Resolved]
  - Encapsulation reaction [Recovered/Resolved]
  - Appendicitis [Recovered/Resolved]
  - Flank pain [Not Recovered/Not Resolved]

NARRATIVE: CASE EVENT DATE: 201709
